FAERS Safety Report 6840948-1 (Version None)
Quarter: 2010Q3

REPORT INFORMATION
  Report Type: 
  Country: None (occurrence: None)
  Receive Date: 20100714
  Receipt Date: 20070621
  Transmission Date: 20110219
  Serious: No
  Sender: FDA-Public Use
  Company Number: US-PFIZER INC-2007052546

PATIENT
  Sex: Male
  Weight: 80.909 kg

DRUGS (3)
  1. CHANTIX [Suspect]
     Indication: SMOKING CESSATION THERAPY
     Dates: start: 20070615
  2. ALL OTHER THERAPEUTIC PRODUCTS [Concomitant]
  3. ZYRTEC [Concomitant]

REACTIONS (2)
  - FEELING ABNORMAL [None]
  - HICCUPS [None]
